FAERS Safety Report 24685816 (Version 1)
Quarter: 2024Q4

REPORT INFORMATION
  Report Type: Spontaneous
  Country: US (occurrence: None)
  Receive Date: 20241127
  Receipt Date: 20241127
  Transmission Date: 20250115
  Serious: Yes (Other)
  Sender: Public
  Company Number: None

PATIENT
  Age: 67 Year
  Sex: Female
  Weight: 106.65 kg

DRUGS (1)
  1. DUPIXENT [Suspect]
     Active Substance: DUPILUMAB
     Indication: Asthma
     Dosage: 300 MG EVERY 2 WEEKS SUBCUTANEOUS?
     Route: 058
     Dates: end: 20241127

REACTIONS (4)
  - Migraine [None]
  - Injection site erythema [None]
  - Malaise [None]
  - Oropharyngeal pain [None]

NARRATIVE: CASE EVENT DATE: 20241127
